FAERS Safety Report 8559450-4 (Version None)
Quarter: 2012Q3

REPORT INFORMATION
  Report Type: 
  Country: None (occurrence: None)
  Receive Date: 20120802
  Receipt Date: 20120730
  Transmission Date: 20120928
  Serious: No
  Sender: FDA-Public Use
  Company Number: US-BAYER-2012-077239

PATIENT
  Age: 27 Year
  Sex: Female

DRUGS (1)
  1. MIRENA [Suspect]
     Indication: CONTRACEPTION
     Dosage: 20 MCG/24HR, CONT
     Dates: start: 20120626, end: 20120712

REACTIONS (4)
  - MEDICAL DEVICE COMPLICATION [None]
  - PROCEDURAL PAIN [None]
  - ABDOMINAL PAIN [None]
  - PELVIC PAIN [None]
